FAERS Safety Report 9178043 (Version 1)
Quarter: 2012Q4

REPORT INFORMATION
  Report Type: 
  Country: US (occurrence: US)
  Receive Date: 20121019
  Receipt Date: 20121019
  Transmission Date: 20130627
  Serious: Yes (Other)
  Sender: FDA-Public Use
  Company Number: US-RB-045475-12

PATIENT
  Age: 15 Year
  Sex: Female

DRUGS (1)
  1. DELSYM ADULT GRAPE [Suspect]
     Indication: PRODUCT USED FOR UNKNOWN INDICATION
     Route: 048
     Dates: start: 20121011

REACTIONS (3)
  - Overdose [Not Recovered/Not Resolved]
  - Mydriasis [Not Recovered/Not Resolved]
  - Disorientation [Not Recovered/Not Resolved]
